FAERS Safety Report 8862991 (Version 1)
Quarter: 2012Q4

REPORT INFORMATION
  Report Type: 
  Country: GB (occurrence: GB)
  Receive Date: 20121026
  Receipt Date: 20121026
  Transmission Date: 20130627
  Serious: Yes (Other)
  Sender: FDA-Public Use
  Company Number: GB-TEVA-365487ISR

PATIENT
  Age: 65 Year
  Sex: Female

DRUGS (1)
  1. INDAPAMIDE [Suspect]
     Indication: PRODUCT USED FOR UNKNOWN INDICATION
     Dosage: unknown
     Route: 065

REACTIONS (1)
  - Asthma [Unknown]
